FAERS Safety Report 9293190 (Version 1)
Quarter: 2013Q2

REPORT INFORMATION
  Report Type: Spontaneous
  Country: US (occurrence: US)
  Receive Date: 20130516
  Receipt Date: 20130516
  Transmission Date: 20140414
  Serious: No
  Sender: FDA-Public Use
  Company Number: US-PFIZER INC-2013149123

PATIENT
  Age: 53 Year
  Sex: Female

DRUGS (2)
  1. LEVOTHYROXINE SODIUM [Suspect]
     Indication: THYROID DISORDER
     Dosage: 100 UG, 1X/DAY
     Dates: start: 2000
  2. CHLORTHALIDONE [Concomitant]
     Indication: HYPERTENSION
     Dosage: 50 MG, 1X/DAY

REACTIONS (1)
  - Night sweats [Unknown]
